FAERS Safety Report 6174864-8 (Version None)
Quarter: 2009Q2

REPORT INFORMATION
  Report Type: 
  Country: None (occurrence: None)
  Receive Date: 20090430
  Receipt Date: 20081204
  Transmission Date: 20091009
  Serious: No
  Sender: FDA-Public Use
  Company Number: US-ASTRAZENECA-2008UW27069

PATIENT
  Sex: Female

DRUGS (5)
  1. NEXIUM [Suspect]
     Indication: GASTROOESOPHAGEAL REFLUX DISEASE
     Route: 048
     Dates: start: 20080101
  2. NORVASC [Concomitant]
  3. ATACAND [Concomitant]
  4. DESIPRAMINE HCL [Concomitant]
  5. CLONAZEPAM [Concomitant]

REACTIONS (3)
  - BLOOD PRESSURE ABNORMAL [None]
  - DRY MOUTH [None]
  - THROAT IRRITATION [None]
